FAERS Safety Report 23475320 (Version 1)
Quarter: 2024Q1

REPORT INFORMATION
  Report Type: Report from Study
  Country: US (occurrence: US)
  Receive Date: 20240204
  Receipt Date: 20240204
  Transmission Date: 20240410
  Serious: No
  Sender: FDA-Public Use
  Company Number: US-EXELIXIS-CABO-23059430

PATIENT
  Age: 63 Year
  Sex: Male

DRUGS (4)
  1. CABOMETYX [Suspect]
     Active Substance: CABOZANTINIB S-MALATE
     Indication: Renal cancer
     Dosage: 40 MG, QD
     Route: 048
     Dates: start: 20221228
  2. CABOMETYX [Suspect]
     Active Substance: CABOZANTINIB S-MALATE
     Dosage: 20 MG (CUTTING TABLET OF 40 MG IN HALF)
     Route: 048
     Dates: start: 20230304
  3. CABOMETYX [Suspect]
     Active Substance: CABOZANTINIB S-MALATE
     Dosage: 20 MG, QD
     Route: 048
     Dates: start: 202303
  4. LEVOTHYROXINE [Concomitant]
     Active Substance: LEVOTHYROXINE\LEVOTHYROXINE SODIUM
     Dosage: UNK

REACTIONS (23)
  - Feeling hot [Unknown]
  - Feeling cold [Unknown]
  - Nail discolouration [Unknown]
  - Feeling abnormal [Unknown]
  - Pain [Unknown]
  - Oral pain [Unknown]
  - Glossodynia [Unknown]
  - Diarrhoea [Unknown]
  - Fatigue [Not Recovered/Not Resolved]
  - Constipation [Unknown]
  - Dysphonia [Unknown]
  - Dry mouth [Unknown]
  - Abdominal pain upper [Unknown]
  - Dry skin [Unknown]
  - Decreased appetite [Not Recovered/Not Resolved]
  - Blood pressure increased [Unknown]
  - Nausea [Not Recovered/Not Resolved]
  - Dysgeusia [Unknown]
  - Vision blurred [Unknown]
  - Intracranial mass [Recovered/Resolved]
  - Headache [Unknown]
  - Weight decreased [Not Recovered/Not Resolved]
  - Wrong technique in product usage process [Unknown]

NARRATIVE: CASE EVENT DATE: 20230101
